FAERS Safety Report 13502192 (Version 1)
Quarter: 2017Q2

REPORT INFORMATION
  Report Type: Spontaneous
  Country: FR (occurrence: FR)
  Receive Date: 20170502
  Receipt Date: 20170502
  Transmission Date: 20170830
  Serious: Yes (Hospitalization)
  Sender: FDA-Public Use
  Company Number: FR-ACCORD-050797

PATIENT
  Age: 75 Year
  Sex: Male

DRUGS (14)
  1. ETOPOSIDE MYLAN [Suspect]
     Active Substance: ETOPOSIDE
     Indication: PROSTATE CANCER METASTATIC
     Route: 042
     Dates: start: 20161215
  2. OXYCONTIN [Concomitant]
     Active Substance: OXYCODONE HYDROCHLORIDE
  3. DIFFU K [Concomitant]
     Active Substance: POTASSIUM CHLORIDE
  4. CISPLATIN ACCORD [Suspect]
     Active Substance: CISPLATIN
     Indication: PROSTATE CANCER METASTATIC
     Route: 042
     Dates: start: 20161115, end: 201703
  5. SOLUPRED [Concomitant]
     Active Substance: PREDNISOLONE
  6. CALCIDOSE [Concomitant]
     Active Substance: CALCIUM CARBONATE
  7. EUPANTOL [Concomitant]
     Active Substance: PANTOPRAZOLE SODIUM
  8. CARBOPLATIN HOSPIRA [Suspect]
     Active Substance: CARBOPLATIN
     Indication: PROSTATE CANCER METASTATIC
     Route: 042
     Dates: start: 20170320
  9. LERCANIDIPINE [Concomitant]
     Active Substance: LERCANIDIPINE
  10. MOTILIUM [Concomitant]
     Active Substance: DOMPERIDONE
  11. PARACETAMOL [Concomitant]
     Active Substance: ACETAMINOPHEN
  12. UVEDOSE [Concomitant]
     Active Substance: CHOLECALCIFEROL
  13. MOVICOL [Concomitant]
     Active Substance: POLYETHYLENE GLYCOL 3350\POTASSIUM CHLORIDE\SODIUM BICARBONATE\SODIUM CHLORIDE
  14. OXYNORMORO [Concomitant]
     Active Substance: OXYCODONE

REACTIONS (4)
  - Hypocalcaemia [Not Recovered/Not Resolved]
  - Acute kidney injury [Recovering/Resolving]
  - Off label use [Unknown]
  - Condition aggravated [Recovering/Resolving]

NARRATIVE: CASE EVENT DATE: 20170308
